FAERS Safety Report 7427703-9 (Version None)
Quarter: 2011Q2

REPORT INFORMATION
  Report Type: 
  Country: None (occurrence: None)
  Receive Date: 20110421
  Receipt Date: 20110413
  Transmission Date: 20111010
  Serious: Yes (Other)
  Sender: FDA-Public Use
  Company Number: US-ASTRAZENECA-2009UW21588

PATIENT
  Age: 49 Year
  Sex: Male
  Weight: 97.5 kg

DRUGS (15)
  1. SEROQUEL [Suspect]
     Indication: BIPOLAR I DISORDER
     Route: 048
     Dates: start: 19970101
  2. SEROQUEL [Suspect]
     Dosage: 200-300 MG
     Route: 048
     Dates: start: 20070718
  3. LISINOPRIL [Concomitant]
     Dosage: 10-20 MG
     Dates: start: 20070618
  4. LYRICA [Concomitant]
     Dates: start: 20070905
  5. DIAZEPAM [Concomitant]
     Dosage: 5-10 MG
     Dates: start: 20070618
  6. ZOLPIDEM [Concomitant]
     Dates: start: 20070718
  7. DEPAKOTE [Concomitant]
     Dates: start: 20070918
  8. HYDROCOD/APAP [Concomitant]
     Dosage: 5/500-7.5/750
     Dates: start: 20070618
  9. ZOLOFT [Concomitant]
     Dates: start: 20070101
  10. SIMVASTATIN [Concomitant]
     Dates: start: 20070908
  11. DEPAKOTE [Concomitant]
     Dates: start: 20070101
  12. ULTRAM ER [Concomitant]
     Dates: start: 20071008
  13. GABAPENTIN [Concomitant]
     Dates: start: 20070718
  14. BUSPIRONE HCL [Concomitant]
     Dates: start: 20070918
  15. MIRTAZAPINE [Concomitant]
     Dates: start: 20070918

REACTIONS (7)
  - NEUROLEPTIC MALIGNANT SYNDROME [None]
  - WEIGHT INCREASED [None]
  - BLOOD CHOLESTEROL INCREASED [None]
  - DIABETES MELLITUS INADEQUATE CONTROL [None]
  - TYPE 2 DIABETES MELLITUS [None]
  - DIABETIC NEUROPATHY [None]
  - HYPERLIPIDAEMIA [None]
